FAERS Safety Report 15824421 (Version 1)
Quarter: 2019Q1

REPORT INFORMATION
  Report Type: Report from Study
  Country: None (occurrence: BR)
  Receive Date: 20190115
  Receipt Date: 20190115
  Transmission Date: 20190417
  Serious: Yes (Disabling, Other)
  Sender: FDA-Public Use
  Company Number: BR-ABBVIE-19K-020-2622271-00

PATIENT
  Sex: Female

DRUGS (1)
  1. HUMIRA [Suspect]
     Active Substance: ADALIMUMAB
     Indication: RHEUMATOID ARTHRITIS
     Route: 058
     Dates: start: 20110701

REACTIONS (6)
  - Joint dislocation [Unknown]
  - Arthritis [Unknown]
  - Gait disturbance [Unknown]
  - Cerebral disorder [Unknown]
  - Pain in extremity [Unknown]
  - Arthropathy [Recovered/Resolved]
